FAERS Safety Report 8686499 (Version 2)
Quarter: 2012Q4

REPORT INFORMATION
  Report Type: 
  Country: US (occurrence: US)
  Receive Date: 20120726
  Receipt Date: 20121112
  Transmission Date: 20130627
  Serious: Yes (Other)
  Sender: FDA-Public Use
  Company Number: US-ASTRAZENECA-2011SE05819

PATIENT
  Age: 57 Year
  Sex: Female
  Weight: 101.6 kg

DRUGS (7)
  1. SEROQUEL [Suspect]
     Indication: BIPOLAR DISORDER
     Route: 048
  2. SEROQUEL [Suspect]
     Indication: BIPOLAR DISORDER
     Route: 048
  3. SEROQUEL [Suspect]
     Indication: BIPOLAR DISORDER
     Route: 048
  4. SEROQUEL [Suspect]
     Indication: BIPOLAR DISORDER
     Dosage: 25 MG FIVE TIMES PER DAY AND 5 100MG TABLET AT NIGHT
     Route: 048
  5. SEROQUEL [Suspect]
     Indication: BIPOLAR DISORDER
     Route: 048
     Dates: start: 200608
  6. NEURONTIN [Concomitant]
  7. LYRICA [Concomitant]

REACTIONS (9)
  - Convulsion [Not Recovered/Not Resolved]
  - Fall [Unknown]
  - Head injury [Unknown]
  - Bone disorder [Unknown]
  - Weight increased [Unknown]
  - Intentional drug misuse [Not Recovered/Not Resolved]
  - Off label use [Unknown]
  - Drug dose omission [Unknown]
  - Incorrect dose administered [Unknown]
